FAERS Safety Report 21311600 (Version 2)
Quarter: 2022Q3

REPORT INFORMATION
  Report Type: Spontaneous
  Country: US (occurrence: US)
  Receive Date: 20220909
  Receipt Date: 20220920
  Transmission Date: 20221026
  Serious: Yes (Life-Threatening, Hospitalization, Other)
  Sender: FDA-Public Use
  Company Number: US-MACLEODS PHARMACEUTICALS US LTD-MAC2022037095

PATIENT

DRUGS (2)
  1. AMLODIPINE BESYLATE [Suspect]
     Active Substance: AMLODIPINE BESYLATE
     Indication: Product used for unknown indication
     Dosage: 4 DOSAGE FORM, SINGLE (TABLETS WERE WHITE AND HAD ?209? WRITTEN ON THEM)
     Route: 048
  2. AMITRIPTYLINE [Concomitant]
     Active Substance: AMITRIPTYLINE
     Indication: Cyclic vomiting syndrome
     Dosage: 4 DOSAGE FORM, QD (40 MG, NIGHTLY, 10 MG TABLETS X 4)
     Route: 048

REACTIONS (4)
  - Sinus tachycardia [Recovered/Resolved]
  - Accidental poisoning [Unknown]
  - Product dispensing error [Recovered/Resolved]
  - Accidental overdose [Recovered/Resolved]
